FAERS Safety Report 25707691 (Version 1)
Quarter: 2025Q3

REPORT INFORMATION
  Report Type: Spontaneous
  Country: EU (occurrence: EU)
  Receive Date: 20250820
  Receipt Date: 20250820
  Transmission Date: 20251020
  Serious: Yes (Life-Threatening)
  Sender: NOVARTIS
  Company Number: EU-002147023-NVSC2025DE131350

PATIENT
  Sex: Female

DRUGS (2)
  1. MAYZENT [Suspect]
     Active Substance: SIPONIMOD
     Indication: Secondary progressive multiple sclerosis
     Route: 065
  2. MAYZENT [Suspect]
     Active Substance: SIPONIMOD
     Route: 065

REACTIONS (1)
  - Lymphocyte count decreased [Recovering/Resolving]
